FAERS Safety Report 10310032 (Version 2)
Quarter: 2014Q3

REPORT INFORMATION
  Report Type: Report from Study
  Country: US (occurrence: US)
  Receive Date: 20140717
  Receipt Date: 20140903
  Transmission Date: 20150326
  Serious: Yes (Other)
  Sender: FDA-Public Use
  Company Number: PHEH2014US014036

PATIENT
  Age: 37 Year
  Sex: Male
  Weight: 123.3 kg

DRUGS (5)
  1. GILENYA [Suspect]
     Active Substance: FINGOLIMOD HYDROCHLORIDE
     Indication: MULTIPLE SCLEROSIS
     Dosage: 0.5 MG, QD
     Route: 048
     Dates: start: 20130830
  2. CALCIUM CARBONATE. [Concomitant]
     Active Substance: CALCIUM CARBONATE
     Dosage: 1000 MG, UNK
     Route: 048
  3. VIT B 12 [Concomitant]
     Route: 048
  4. INFLUENZA VACCINE [Suspect]
     Active Substance: INFLUENZA VIRUS VACCINE
     Indication: IMMUNISATION
     Dates: start: 20131014, end: 20131014
  5. VITAMIN D3 [Concomitant]
     Active Substance: CHOLECALCIFEROL
     Dosage: 5000 U, DAILY
     Route: 048

REACTIONS (4)
  - Intraocular pressure increased [Unknown]
  - Headache [Not Recovered/Not Resolved]
  - Optic atrophy [Unknown]
  - Vaccination error [Unknown]

NARRATIVE: CASE EVENT DATE: 20131014
